FAERS Safety Report 17438703 (Version 1)
Quarter: 2020Q1

REPORT INFORMATION
  Report Type: Spontaneous
  Country: US (occurrence: US)
  Receive Date: 20200205
  Receipt Date: 20200205
  Transmission Date: 20200409
  Serious: No
  Sender: FDA-Public Use
  Company Number: None

PATIENT
  Age: 72 Year
  Sex: Female
  Weight: 116.57 kg

DRUGS (1)
  1. GENERIC BRAND OF NORCO [Suspect]
     Active Substance: ACETAMINOPHEN\HYDROCODONE BITARTRATE

REACTIONS (3)
  - Drug tolerance [None]
  - Drug intolerance [None]
  - Product substitution issue [None]

NARRATIVE: CASE EVENT DATE: 20120110
